FAERS Safety Report 23352362 (Version 1)
Quarter: 2023Q4

REPORT INFORMATION
  Report Type: Spontaneous
  Country: CN (occurrence: CN)
  Receive Date: 20231229
  Receipt Date: 20231229
  Transmission Date: 20240110
  Serious: Yes (Hospitalization, Other)
  Sender: FDA-Public Use
  Company Number: CN-009507513-2312CHN009749

PATIENT
  Age: 66 Year
  Sex: Female
  Weight: 52 kg

DRUGS (1)
  1. PEMBROLIZUMAB [Suspect]
     Active Substance: PEMBROLIZUMAB
     Indication: Non-small cell lung cancer
     Dosage: 200 MG, Q3W
     Route: 041
     Dates: start: 20231013, end: 20231124

REACTIONS (7)
  - Intracranial hypotension [Recovering/Resolving]
  - Lacunar infarction [Unknown]
  - Cerebral haemorrhage [Unknown]
  - Haemangioma [Unknown]
  - Cerebral artery occlusion [Unknown]
  - Arterial fibrosis [Unknown]
  - Occult blood positive [Unknown]

NARRATIVE: CASE EVENT DATE: 20231125
